FAERS Safety Report 6172381-2 (Version None)
Quarter: 2009Q2

REPORT INFORMATION
  Report Type: 
  Country: None (occurrence: None)
  Receive Date: 20090429
  Receipt Date: 20090420
  Transmission Date: 20091009
  Serious: Yes (Disabling)
  Sender: FDA-Public Use
  Company Number: PHHY2009CN15014

PATIENT
  Age: 70 Year
  Sex: Female

DRUGS (1)
  1. MIACALCIN [Suspect]
     Indication: OSTEOPOROSIS
     Dosage: 50 IU, QD
     Route: 058
     Dates: start: 20090413, end: 20090420

REACTIONS (3)
  - ARTHRALGIA [None]
  - DYSSTASIA [None]
  - MUSCULAR WEAKNESS [None]
